FAERS Safety Report 12404153 (Version 2)
Quarter: 2016Q2

REPORT INFORMATION
  Report Type: Spontaneous
  Country: ES (occurrence: ES)
  Receive Date: 20160525
  Receipt Date: 20160531
  Transmission Date: 20160815
  Serious: Yes (Hospitalization)
  Sender: FDA-Public Use
  Company Number: ES-JNJFOC-20160518663

PATIENT
  Age: 77 Year
  Sex: Female
  Weight: 80 kg

DRUGS (23)
  1. VELCADE [Concomitant]
     Active Substance: BORTEZOMIB
     Indication: PLASMA CELL MYELOMA
     Dosage: MEDICAL KIT NUMBER:V15372-09
     Route: 058
     Dates: start: 20160304, end: 20160315
  2. MELPHALAN [Concomitant]
     Active Substance: MELPHALAN
     Indication: PLASMA CELL MYELOMA
     Dosage: MEDICAL KIT NUMBER:M12609
     Route: 048
  3. LINEZOLID. [Concomitant]
     Active Substance: LINEZOLID
     Indication: SINUS BRADYCARDIA
     Route: 042
     Dates: start: 20160305
  4. DULCOLAX NOS [Concomitant]
     Active Substance: BISACODYL OR DOCUSATE SODIUM
     Indication: SINUS BRADYCARDIA
     Route: 048
     Dates: start: 20160307
  5. CEFEPIME [Concomitant]
     Active Substance: CEFEPIME HYDROCHLORIDE
     Indication: SINUS BRADYCARDIA
     Route: 042
     Dates: start: 20160305
  6. MAGNESIUM [Concomitant]
     Active Substance: MAGNESIUM
     Indication: PRODUCT USED FOR UNKNOWN INDICATION
     Route: 065
  7. DARATUMUMAB [Concomitant]
     Active Substance: DARATUMUMAB
     Indication: PLASMA CELL MYELOMA
     Dosage: MEDICAL KIT NUMBER: 077982-05,07798??2-06
     Route: 042
     Dates: start: 20160304, end: 20160304
  8. CANESTEN [Concomitant]
     Active Substance: CLOTRIMAZOLE
     Indication: PRODUCT USED FOR UNKNOWN INDICATION
     Route: 065
  9. LINEZOLID. [Concomitant]
     Active Substance: LINEZOLID
     Indication: SINUS BRADYCARDIA
     Route: 042
     Dates: start: 20160305
  10. PARACETAMOL [Concomitant]
     Active Substance: ACETAMINOPHEN
     Indication: SINUS BRADYCARDIA
     Route: 048
     Dates: start: 20160305
  11. FLUCONAZOLE. [Concomitant]
     Active Substance: FLUCONAZOLE
     Indication: PRODUCT USED FOR UNKNOWN INDICATION
     Route: 065
  12. AMIKACINA [Concomitant]
     Active Substance: AMIKACIN SULFATE
     Indication: SINUS BRADYCARDIA
     Route: 042
     Dates: start: 20160305, end: 20160305
  13. DUROGESIC [Suspect]
     Active Substance: FENTANYL
     Indication: SINUS BRADYCARDIA
     Route: 062
     Dates: start: 20160323
  14. DULCOLAX NOS [Concomitant]
     Active Substance: BISACODYL OR DOCUSATE SODIUM
     Indication: SINUS BRADYCARDIA
     Route: 054
     Dates: start: 20160307
  15. PRIMPERAN [Concomitant]
     Active Substance: METOCLOPRAMIDE HYDROCHLORIDE
     Indication: SINUS BRADYCARDIA
     Route: 042
     Dates: start: 20160305
  16. CEFTRIAXON [Concomitant]
     Active Substance: CEFTRIAXONE
     Indication: SINUS BRADYCARDIA
     Route: 042
     Dates: start: 20160304, end: 20160304
  17. PREDNISONE. [Concomitant]
     Active Substance: PREDNISONE
     Indication: PLASMA CELL MYELOMA
     Route: 048
  18. ENOXAPARIN [Concomitant]
     Active Substance: ENOXAPARIN
     Indication: SINUS BRADYCARDIA
     Route: 058
     Dates: start: 20160306
  19. OMEPRAZOLE. [Concomitant]
     Active Substance: OMEPRAZOLE
     Indication: PRODUCT USED FOR UNKNOWN INDICATION
     Route: 065
  20. DEXAMETHASONE. [Concomitant]
     Active Substance: DEXAMETHASONE
     Indication: PLASMA CELL MYELOMA
     Dosage: START AND STOP TIME 11:40
     Route: 048
     Dates: start: 20160304, end: 20160304
  21. DUROGESIC [Suspect]
     Active Substance: FENTANYL
     Indication: SINUS BRADYCARDIA
     Route: 062
     Dates: start: 20160305
  22. DUROGESIC [Suspect]
     Active Substance: FENTANYL
     Indication: SINUS BRADYCARDIA
     Route: 062
     Dates: start: 20160323
  23. EXFORGE [Concomitant]
     Active Substance: AMLODIPINE BESYLATE\VALSARTAN
     Indication: PRODUCT USED FOR UNKNOWN INDICATION
     Route: 065

REACTIONS (5)
  - Inappropriate schedule of drug administration [Unknown]
  - Product use issue [Unknown]
  - Hypotension [Recovered/Resolved]
  - Somnolence [Unknown]
  - Off label use [Unknown]

NARRATIVE: CASE EVENT DATE: 20160305
